FAERS Safety Report 7391935-9 (Version None)
Quarter: 2011Q2

REPORT INFORMATION
  Report Type: 
  Country: None (occurrence: None)
  Receive Date: 20110404
  Receipt Date: 20110328
  Transmission Date: 20111010
  Serious: Yes (Hospitalization, Other)
  Sender: FDA-Public Use
  Company Number: US-TEVA-273656USA

PATIENT
  Age: 35 Year
  Sex: Female

DRUGS (1)
  1. PHENTERMINE HCL [Suspect]
     Indication: WEIGHT DECREASED
     Dates: start: 20050101

REACTIONS (2)
  - POSTERIOR REVERSIBLE ENCEPHALOPATHY SYNDROME [None]
  - HAEMORRHAGE INTRACRANIAL [None]
